FAERS Safety Report 9089823 (Version 1)
Quarter: 2013Q1

REPORT INFORMATION
  Report Type: Spontaneous
  Country: GB (occurrence: GB)
  Receive Date: 20130201
  Receipt Date: 20130201
  Transmission Date: 20140127
  Serious: Yes (Other)
  Sender: FDA-Public Use
  Company Number: GB-ELI_LILLY_AND_COMPANY-GB201301008852

PATIENT
  Age: 53 Year
  Sex: Female
  Weight: 103 kg

DRUGS (9)
  1. EXENATIDE [Suspect]
     Dosage: UNK
     Dates: start: 20121018
  2. FERROUS FUMARATE [Concomitant]
     Dosage: UNK
     Dates: start: 20121211, end: 20130108
  3. FERROUS FUMARATE [Concomitant]
     Dosage: UNK
     Dates: start: 20121022, end: 20121119
  4. LEVOTHYROXINE [Concomitant]
     Dosage: UNK
     Dates: start: 20121022
  5. LIRAGLUTIDE [Concomitant]
     Dosage: UNK
     Dates: start: 20130117
  6. METFORMIN [Concomitant]
     Dosage: UNK
     Dates: start: 20120924
  7. OMEPRAZOLE [Concomitant]
     Dosage: UNK
     Dates: start: 20121122
  8. SIMVASTATIN [Concomitant]
     Dosage: UNK
     Dates: start: 20121022
  9. SITAGLIPTIN [Concomitant]
     Dosage: UNK
     Dates: start: 20121022, end: 20121119

REACTIONS (2)
  - Granuloma [Not Recovered/Not Resolved]
  - Injection site mass [Not Recovered/Not Resolved]
